FAERS Safety Report 6538130-0 (Version None)
Quarter: 2010Q1

REPORT INFORMATION
  Report Type: 
  Country: None (occurrence: None)
  Receive Date: 20100114
  Receipt Date: 20100104
  Transmission Date: 20100710
  Serious: Yes (Death)
  Sender: FDA-Public Use
  Company Number: US-PFIZER INC-2010001278

PATIENT
  Age: 76 Year
  Sex: Female

DRUGS (2)
  1. THIOTHIXENE HCL [Suspect]
     Route: 048
  2. TRAZODONE HYDROCHLORIDE [Suspect]
     Route: 048

REACTIONS (3)
  - CARDIAC ARREST [None]
  - COMPLETED SUICIDE [None]
  - RESPIRATORY ARREST [None]
